FAERS Safety Report 8788187 (Version 2)
Quarter: 2012Q4

REPORT INFORMATION
  Report Type: 
  Country: US (occurrence: US)
  Receive Date: 20120914
  Receipt Date: 20121008
  Transmission Date: 20130627
  Serious: No
  Sender: FDA-Public Use
  Company Number: US-VERTEX PHARMACEUTICAL INC.-AE-2012-011626

PATIENT
  Age: 51 Year
  Sex: Male
  Weight: 98 kg

DRUGS (9)
  1. INCIVEK [Suspect]
     Indication: HEPATITIS C
     Dosage: 750 mg, tid
     Route: 048
     Dates: start: 20120707
  2. RIBAVIRIN [Suspect]
     Indication: HEPATITIS C
     Dosage: 600 mg, bid
     Route: 048
     Dates: start: 20120707, end: 20120731
  3. RIBAVIRIN [Suspect]
     Dosage: 400 mg AM, 200 mg PM
     Route: 048
     Dates: start: 20120731
  4. PEGASYS [Suspect]
     Indication: HEPATITIS C
     Dosage: 180 ?g, UNK
     Route: 058
     Dates: start: 20120707
  5. METFORMIN [Concomitant]
     Dosage: 500 mg, UNK
  6. ZOLOFT [Concomitant]
     Dosage: 25 mg, UNK
  7. ZYRTEC [Concomitant]
     Dosage: 5 mg, UNK
  8. BENADRYL                           /00000402/ [Concomitant]
     Dosage: 25 mg, UNK
  9. TRIAMCINOLON                       /00031901/ [Concomitant]
     Dosage: 0.025 %, UNK

REACTIONS (5)
  - Increased upper airway secretion [Unknown]
  - Fatigue [Unknown]
  - Rash [Not Recovered/Not Resolved]
  - Anaemia [Unknown]
  - Pruritus [Unknown]
